FAERS Safety Report 8799726 (Version 1)
Quarter: 2012Q4

REPORT INFORMATION
  Report Type: Spontaneous
  Country: CA (occurrence: None)
  Receive Date: 20120914
  Receipt Date: 20120914
  Transmission Date: 20130627
  Serious: Yes (Hospitalization)
  Sender: FDA-Public Use
  Company Number: DSA_59388_2012

PATIENT
  Age: 54 Year
  Sex: Male

DRUGS (1)
  1. METRONIDAZOLE (METRONIDAZOLE) [Suspect]
     Indication: BRONCHIECTASIS
     Route: 048

REACTIONS (5)
  - Ataxia [None]
  - Grand mal convulsion [None]
  - Dysarthria [None]
  - Cerebellar syndrome [None]
  - Neurotoxicity [None]
